FAERS Safety Report 17167835 (Version 10)
Quarter: 2020Q2

REPORT INFORMATION
  Report Type: Report from Study
  Country: JP (occurrence: JP)
  Receive Date: 20191218
  Receipt Date: 20200506
  Transmission Date: 20200713
  Serious: Yes (Hospitalization)
  Sender: FDA-Public Use
  Company Number: JP-ROCHE-2494914

PATIENT
  Age: 32 Year
  Sex: Female

DRUGS (2)
  1. ATEZOLIZUMAB. [Suspect]
     Active Substance: ATEZOLIZUMAB
     Indication: TRIPLE NEGATIVE BREAST CANCER
     Dosage: MOST RECENT DOSE OF ATEZOLIZUMAB PRIOR TO SAE ONSET: 27/NOV/2019
     Route: 042
     Dates: start: 20191127
  2. PACLITAXEL. [Suspect]
     Active Substance: PACLITAXEL
     Indication: TRIPLE NEGATIVE BREAST CANCER
     Dosage: MOST RECENT DOSE OF PACLITAXEL PRIOR TO SAE ONSET: 27/NOV/2019
     Route: 042
     Dates: start: 20191127

REACTIONS (2)
  - Cytokine storm [Recovered/Resolved]
  - Viral rash [Recovered/Resolved]

NARRATIVE: CASE EVENT DATE: 20191205
